FAERS Safety Report 6475842-1 (Version None)
Quarter: 2009Q4

REPORT INFORMATION
  Report Type: 
  Country: None (occurrence: None)
  Receive Date: 20091204
  Receipt Date: 20091125
  Transmission Date: 20100525
  Serious: Yes (Hospitalization)
  Sender: FDA-Public Use
  Company Number: GB-PFIZER INC-2007047979

PATIENT
  Age: 60 Year
  Sex: Male

DRUGS (2)
  1. PEGVISOMANT [Suspect]
     Indication: ACROMEGALY
  2. SANDOSTATIN LAR [Suspect]
     Indication: ACROMEGALY
     Dosage: 27 MG, MONTHLY

REACTIONS (4)
  - BLOOD ALKALINE PHOSPHATASE INCREASED [None]
  - CHOLECYSTECTOMY [None]
  - CHOLECYSTITIS ACUTE [None]
  - CHOLELITHIASIS [None]
